FAERS Safety Report 10491903 (Version 1)
Quarter: 2014Q4

REPORT INFORMATION
  Report Type: Spontaneous
  Country: NL (occurrence: NL)
  Receive Date: 20141002
  Receipt Date: 20141002
  Transmission Date: 20150528
  Serious: Yes (Other)
  Sender: FDA-Public Use
  Company Number: PHHY2014NL128254

PATIENT
  Sex: Female
  Weight: 3.76 kg

DRUGS (4)
  1. AZITHROMYCIN [Concomitant]
     Active Substance: AZITHROMYCIN ANHYDROUS
  2. METHYLPREDNISOLONE. [Suspect]
     Active Substance: METHYLPREDNISOLONE
     Dosage: 300 MG/M2, PER DAY
     Route: 042
  3. PREDNISOLONE. [Suspect]
     Active Substance: PREDNISOLONE
     Dosage: 2 MG/KG, PER DAY
     Route: 048
  4. HYDROCORTISONE. [Suspect]
     Active Substance: HYDROCORTISONE

REACTIONS (3)
  - Weaning failure [Unknown]
  - Drug ineffective [Unknown]
  - Demyelination [Unknown]
